FAERS Safety Report 5367689-4 (Version None)
Quarter: 2007Q2

REPORT INFORMATION
  Report Type: 
  Country: None (occurrence: None)
  Receive Date: 20070622
  Receipt Date: 20070308
  Transmission Date: 20071010
  Serious: No
  Sender: FDA-Public Use
  Company Number: US-ASTRAZENECA-2007UW04581

PATIENT
  Age: 59 Year
  Sex: Female
  Weight: 41.7 kg

DRUGS (13)
  1. PULMICORT RESPULES [Suspect]
     Indication: CHRONIC OBSTRUCTIVE PULMONARY DISEASE
     Route: 055
     Dates: start: 20070201
  2. PULMICORT RESPULES [Suspect]
     Indication: EMPHYSEMA
     Route: 055
     Dates: start: 20070201
  3. CELEXA [Concomitant]
  4. GENERIC TICLID [Concomitant]
  5. ALBUTEROL [Concomitant]
  6. DILANTIN [Concomitant]
  7. PHENOBARBITAL TAB [Concomitant]
  8. DILTIAZEM [Concomitant]
  9. DUONEB [Concomitant]
  10. SIMVASTATIN [Concomitant]
  11. NORVASC [Concomitant]
  12. XOPENEX [Concomitant]
  13. ATROVENT [Concomitant]

REACTIONS (1)
  - STOMATITIS [None]
